FAERS Safety Report 4940490-9 (Version None)
Quarter: 2006Q1

REPORT INFORMATION
  Report Type: 
  Country: None (occurrence: None)
  Receive Date: 20060131
  Receipt Date: 20051006
  Transmission Date: 20060701
  Serious: No
  Sender: FDA-Public Use
  Company Number: 200517116US

PATIENT
  Age: 56 Year
  Sex: Female
  Weight: 81 kg

DRUGS (7)
  1. KETEK [Suspect]
     Indication: ACUTE SINUSITIS
     Dosage: 800 MG QD PO
     Route: 048
     Dates: start: 20050329, end: 20050330
  2. DIOVAN [Concomitant]
  3. NORVASC [Concomitant]
  4. NEXIUM [Concomitant]
  5. FLUTICASONE PROPIONATE, SALMETEROL XINAFOATE (ADVAIR DISKUS) [Concomitant]
  6. ALBUTEROL [Concomitant]
  7. ZOLOFT [Concomitant]

REACTIONS (2)
  - NAUSEA [None]
  - VOMITING [None]
